FAERS Safety Report 8472039-0 (Version None)
Quarter: 2012Q2

REPORT INFORMATION
  Report Type: 
  Country: None (occurrence: None)
  Receive Date: 20120323
  Receipt Date: 20111020
  Transmission Date: 20120825
  Serious: Yes (Other)
  Sender: FDA-Public Use
  Company Number: 163-21880-11100718

PATIENT
  Age: 72 Year
  Sex: Female

DRUGS (7)
  1. VALACYCLOVIR [Concomitant]
  2. OMEPRAZOLE [Concomitant]
  3. ANTIBIOTICS (ANTIBIOTICS) [Concomitant]
  4. OPIOIDS (OPIOIDS) [Concomitant]
  5. REVLIMID [Suspect]
     Indication: MULTIPLE MYELOMA
     Dosage: 10 MG, ON DAYS 1-14 OF 21, PO
     Route: 048
     Dates: start: 20110914, end: 20110928
  6. ALLOPURINOL [Concomitant]
  7. VALSARTAN [Concomitant]

REACTIONS (3)
  - RENAL FAILURE [None]
  - MULTIPLE MYELOMA [None]
  - DRUG INEFFECTIVE [None]
